FAERS Safety Report 7435223-0 (Version None)
Quarter: 2011Q2

REPORT INFORMATION
  Report Type: 
  Country: None (occurrence: None)
  Receive Date: 20110418
  Receipt Date: 20110404
  Transmission Date: 20111010
  Serious: Yes (Other)
  Sender: FDA-Public Use
  Company Number: JP-ACCORD-008741

PATIENT
  Age: 58 Year
  Sex: Male

DRUGS (4)
  1. FLUOROURACIL [Suspect]
     Indication: RENAL CANCER RECURRENT
  2. LEUCOVORIN(LEUCOVORIN) [Concomitant]
  3. IRINOTECAN HCL [Suspect]
     Indication: RECTAL CANCER RECURRENT
  4. OXALIPLATIN [Suspect]
     Indication: RENAL CANCER RECURRENT

REACTIONS (3)
  - TREATMENT FAILURE [None]
  - TOXICITY TO VARIOUS AGENTS [None]
  - RASH [None]
